FAERS Safety Report 11350460 (Version 1)
Quarter: 2015Q3

REPORT INFORMATION
  Report Type: Spontaneous
  Country: US (occurrence: None)
  Receive Date: 20150806
  Receipt Date: 20150806
  Transmission Date: 20151125
  Serious: Yes (Life-Threatening)
  Sender: FDA-Public Use
  Company Number: None

PATIENT
  Age: 68 Year
  Sex: Female

DRUGS (3)
  1. DIOVAN [Concomitant]
     Active Substance: VALSARTAN
  2. CARFILZOMIB UNKNOWN ONYX [Suspect]
     Active Substance: CARFILZOMIB
     Indication: PLASMA CELL MYELOMA
  3. PROTONIX [Concomitant]
     Active Substance: PANTOPRAZOLE SODIUM

REACTIONS (9)
  - Abdominal pain upper [None]
  - Headache [None]
  - Infusion related reaction [None]
  - Dyspnoea [None]
  - Drug hypersensitivity [None]
  - Blood pressure decreased [None]
  - Flushing [None]
  - Cardiac disorder [None]
  - Chest pain [None]

NARRATIVE: CASE EVENT DATE: 20150803
